FAERS Safety Report 14128435 (Version 1)
Quarter: 2017Q4

REPORT INFORMATION
  Report Type: Spontaneous
  Country: US (occurrence: None)
  Receive Date: 20171025
  Receipt Date: 20171025
  Transmission Date: 20180321
  Serious: Yes (Hospitalization, Other)
  Sender: FDA-Public Use
  Company Number: None

PATIENT
  Age: 76 Year
  Sex: Male
  Weight: 67.6 kg

DRUGS (2)
  1. IPILIMUMAB 1MG/KG [Suspect]
     Active Substance: IPILIMUMAB
     Indication: METASTATIC MALIGNANT MELANOMA
     Dosage: FREQUENCY - Q 6 WEEKS
     Route: 042
     Dates: start: 20170403, end: 20170821
  2. NIVOLUMAB 3MG/KG [Suspect]
     Active Substance: NIVOLUMAB
     Indication: METASTATIC MALIGNANT MELANOMA
     Route: 042
     Dates: start: 20170403, end: 20170905

REACTIONS (9)
  - Muscular weakness [None]
  - Dysarthria [None]
  - Cardiac disorder [None]
  - Nervous system disorder [None]
  - Cerebrovascular accident [None]
  - Angina unstable [None]
  - Fatigue [None]
  - Drug intolerance [None]
  - Complication associated with device [None]

NARRATIVE: CASE EVENT DATE: 20170921
